FAERS Safety Report 4839636-2 (Version None)
Quarter: 2005Q4

REPORT INFORMATION
  Report Type: 
  Country: None (occurrence: None)
  Receive Date: 20051129
  Receipt Date: 20050425
  Transmission Date: 20060501
  Serious: No
  Sender: FDA-Public Use
  Company Number: US-GLAXOSMITHKLINE-A0555609A

PATIENT
  Age: 58 Year
  Sex: Female

DRUGS (5)
  1. WELLBUTRIN SR [Suspect]
     Indication: DEPRESSION
     Dosage: 150MG TWICE PER DAY
     Route: 048
     Dates: start: 20021001
  2. SYNTHROID [Concomitant]
  3. ALDACTONE [Concomitant]
  4. ALLEGRA [Concomitant]
  5. PREVACID [Concomitant]

REACTIONS (2)
  - INSOMNIA [None]
  - TINNITUS [None]
